FAERS Safety Report 5319954-4 (Version None)
Quarter: 2007Q2

REPORT INFORMATION
  Report Type: 
  Country: None (occurrence: None)
  Receive Date: 20070502
  Receipt Date: 20070424
  Transmission Date: 20071010
  Serious: Yes (Other)
  Sender: FDA-Public Use
  Company Number: 2007SP006588

PATIENT
  Age: 56 Year
  Sex: Male
  Weight: 75 kg

DRUGS (10)
  1. TEMODAL [Suspect]
     Indication: BRAIN NEOPLASM MALIGNANT
     Dosage: 95 MG; QD; PO
     Route: 048
     Dates: start: 20070227, end: 20070402
  2. TEMODAL [Suspect]
     Indication: BRAIN NEOPLASM MALIGNANT
     Dosage: 95 MG; QD; PO
     Route: 048
     Dates: start: 20070412
  3. TEMODAL [Suspect]
  4. DILANTIN [Concomitant]
  5. TYLENOL [Concomitant]
  6. ZOFRAN [Concomitant]
  7. MAXERAN [Concomitant]
  8. RIVOTRIL [Concomitant]
  9. ELCOM [Concomitant]
  10. CODEINE SUL TAB [Concomitant]

REACTIONS (2)
  - BRAIN OEDEMA [None]
  - VOMITING [None]
